FAERS Safety Report 20775110 (Version 1)
Quarter: 2022Q2

REPORT INFORMATION
  Report Type: Spontaneous
  Country: CA (occurrence: CA)
  Receive Date: 20220502
  Receipt Date: 20220502
  Transmission Date: 20220721
  Serious: Yes (Other)
  Sender: FDA-Public Use
  Company Number: CA-SAMSUNG BIOEPIS-SB-2022-10215

PATIENT
  Age: 73 Year
  Sex: Female
  Weight: 52 kg

DRUGS (1)
  1. INFLIXIMAB [Suspect]
     Active Substance: INFLIXIMAB
     Indication: Crohn^s disease
     Route: 042

REACTIONS (7)
  - Heart rate decreased [Unknown]
  - Condition aggravated [Unknown]
  - Malaise [Unknown]
  - Weight decreased [Unknown]
  - Weight increased [Unknown]
  - Intentional product use issue [Unknown]
  - Off label use [Unknown]
